FAERS Safety Report 19946562 (Version 2)
Quarter: 2021Q4

REPORT INFORMATION
  Report Type: Spontaneous
  Country: RU (occurrence: RU)
  Receive Date: 20211012
  Receipt Date: 20211020
  Transmission Date: 20220303
  Serious: Yes (Other)
  Sender: FDA-Public Use
  Company Number: RU-SA-2021SA335575

PATIENT
  Age: 46 Year
  Sex: Male

DRUGS (9)
  1. HYDROXYCHLOROQUINE [Suspect]
     Active Substance: HYDROXYCHLOROQUINE
     Indication: COVID-19 treatment
     Dosage: 400 MG, BID
  2. HYDROXYCHLOROQUINE [Suspect]
     Active Substance: HYDROXYCHLOROQUINE
     Indication: Product use in unapproved indication
  3. CEFTRIAXONE [Suspect]
     Active Substance: CEFTRIAXONE
     Indication: COVID-19 treatment
     Dosage: 1000 MG, QD
  4. AZITHROMYCIN ANHYDROUS [Suspect]
     Active Substance: AZITHROMYCIN ANHYDROUS
     Indication: COVID-19 treatment
     Dosage: 500 MG, QD
  5. ENOXAPARIN SODIUM [Suspect]
     Active Substance: ENOXAPARIN SODIUM
     Indication: COVID-19 treatment
     Dosage: 0.4 MG, QD
  6. DEXAMETHASONE [Suspect]
     Active Substance: DEXAMETHASONE
     Indication: COVID-19 treatment
     Dosage: 8 MG, QD
  7. BARICITINIB [Suspect]
     Active Substance: BARICITINIB
     Indication: COVID-19 treatment
     Dosage: 4 MG, QD
  8. METHOTREXATE [Concomitant]
     Active Substance: METHOTREXATE
     Indication: Psoriatic arthropathy
     Dosage: 20 MG, QW
  9. METHOTREXATE [Concomitant]
     Active Substance: METHOTREXATE
     Dosage: 20 MG, QW

REACTIONS (8)
  - Psoriasis [Recovering/Resolving]
  - Erythrodermic psoriasis [Recovering/Resolving]
  - Lymphadenopathy [Recovering/Resolving]
  - Pustule [Recovering/Resolving]
  - Skin lesion [Recovering/Resolving]
  - Psoriatic arthropathy [Recovering/Resolving]
  - Back pain [Recovering/Resolving]
  - Off label use [Unknown]
